FAERS Safety Report 24447411 (Version 4)
Quarter: 2025Q1

REPORT INFORMATION
  Report Type: Spontaneous
  Country: FR (occurrence: FR)
  Receive Date: 20241016
  Receipt Date: 20250211
  Transmission Date: 20250409
  Serious: Yes (Hospitalization)
  Sender: NOVARTIS
  Company Number: FR-002147023-NVSC2024FR201861

PATIENT
  Age: 68 Year
  Sex: Male

DRUGS (10)
  1. TEGRETOL [Suspect]
     Active Substance: CARBAMAZEPINE
     Indication: Neuralgia
     Dosage: 400 MG, BID (TWO TABLETS MORNING AND EVENING)
     Route: 065
     Dates: start: 202307
  2. TEGRETOL [Suspect]
     Active Substance: CARBAMAZEPINE
     Dosage: 800 MG, BID MORNING (800MG) AND EVENING (800MG)
     Route: 065
     Dates: start: 202307
  3. TEGRETOL [Suspect]
     Active Substance: CARBAMAZEPINE
     Dosage: 200 MG, BID (MORNING AND EVENING)
     Route: 065
  4. TEGRETOL [Suspect]
     Active Substance: CARBAMAZEPINE
     Dosage: 80 ML, BID ((MORNING AND EVENING) 10YEARS (AROUND 2014))
     Route: 065
  5. TEGRETOL [Suspect]
     Active Substance: CARBAMAZEPINE
     Dosage: 3.25 ML 3 TIMES A DAY, I.E.  195 MG A DAY
     Route: 048
  6. TEGRETOL [Suspect]
     Active Substance: CARBAMAZEPINE
     Dosage: 2X200 MG MORNING AND EVENING
     Route: 065
     Dates: start: 202306
  7. TEGRETOL [Suspect]
     Active Substance: CARBAMAZEPINE
     Dosage: 200 MG, BID MORNING AND EVENING
     Route: 065
     Dates: start: 202308, end: 202407
  8. TEGRETOL [Suspect]
     Active Substance: CARBAMAZEPINE
     Route: 065
     Dates: start: 202404
  9. TEGRETOL [Suspect]
     Active Substance: CARBAMAZEPINE
     Route: 065
     Dates: start: 202410
  10. TEGRETOL [Suspect]
     Active Substance: CARBAMAZEPINE
     Route: 065
     Dates: end: 20250106

REACTIONS (4)
  - Fall [Unknown]
  - Cerebellar ataxia [Unknown]
  - Weight decreased [Unknown]
  - Drug level abnormal [Unknown]

NARRATIVE: CASE EVENT DATE: 20230801
